FAERS Safety Report 5913838-6 (Version None)
Quarter: 2008Q4

REPORT INFORMATION
  Report Type: 
  Country: None (occurrence: None)
  Receive Date: 20081009
  Receipt Date: 20080930
  Transmission Date: 20090506
  Serious: Yes (Other)
  Sender: FDA-Public Use
  Company Number: A0749841A

PATIENT
  Age: 51 Year
  Sex: Female

DRUGS (2)
  1. COMBIVIR [Suspect]
     Indication: PROPHYLAXIS
     Dosage: 1TAB TWICE PER DAY
     Route: 048
     Dates: start: 20070628, end: 20070803
  2. KALETRA [Concomitant]

REACTIONS (10)
  - ABDOMINAL PAIN [None]
  - ABDOMINAL PAIN UPPER [None]
  - ANAEMIA [None]
  - DIABETES MELLITUS [None]
  - FATIGUE [None]
  - HEPATITIS [None]
  - HYPERTENSION [None]
  - LUPUS-LIKE SYNDROME [None]
  - NEUROPATHY PERIPHERAL [None]
  - PANCREATITIS [None]
